FAERS Safety Report 25219934 (Version 1)
Quarter: 2025Q2

REPORT INFORMATION
  Report Type: Spontaneous
  Country: AU (occurrence: AU)
  Receive Date: 20250421
  Receipt Date: 20250421
  Transmission Date: 20250717
  Serious: Yes (Other)
  Sender: MYLAN
  Company Number: AU-MYLANLABS-2025M1033575

PATIENT
  Age: 46 Year
  Sex: Male

DRUGS (1)
  1. CLOZARIL [Suspect]
     Active Substance: CLOZAPINE
     Indication: Schizophrenia

REACTIONS (10)
  - Autoimmune disorder [Unknown]
  - Diabetes mellitus [Not Recovered/Not Resolved]
  - Biliary tract disorder [Unknown]
  - Blood creatinine decreased [Recovered/Resolved]
  - Adjusted calcium decreased [Recovered/Resolved]
  - Blood phosphorus decreased [Recovered/Resolved]
  - Globulins decreased [Recovered/Resolved]
  - Mean cell haemoglobin increased [Recovered/Resolved]
  - Metabolic dysfunction-associated liver disease [Unknown]
  - Infection [Unknown]

NARRATIVE: CASE EVENT DATE: 20240924
